FAERS Safety Report 5571912-0 (Version None)
Quarter: 2007Q4

REPORT INFORMATION
  Report Type: 
  Country: None (occurrence: None)
  Receive Date: 20071130
  Receipt Date: 20070823
  Transmission Date: 20080405
  Serious: No
  Sender: FDA-Public Use
  Company Number: US200708005409

PATIENT
  Age: 69 Year
  Sex: Female
  Weight: 78 kg

DRUGS (22)
  1. BYETTA [Suspect]
     Indication: TYPE 2 DIABETES MELLITUS
     Dosage: 5 UG, 2/D, SUBCUTANEOUS
     Route: 058
     Dates: start: 20070518, end: 20070529
  2. EXENATIDE 5MCG PEN, DISPOSABLE DEVICE (EXENATIDE PEN (5MCG)) PEN,DISPO [Concomitant]
  3. METFORMIN HCL [Concomitant]
  4. ACTOS /USA/ (PIOGLITAZONE HYDROCHLORIDE) [Concomitant]
  5. AMARYL [Concomitant]
  6. THYROID TAB [Concomitant]
  7. LISINOPRIL [Concomitant]
  8. CELEBREX [Concomitant]
  9. PREMARIN [Concomitant]
  10. CITALOPRAM HYDROBROMIDE [Concomitant]
  11. CRESTOR [Concomitant]
  12. ZETIA [Concomitant]
  13. HYDROCHLOROTHIAZIDE [Concomitant]
  14. OMEPRAZOLE [Concomitant]
  15. ASPIRIN [Concomitant]
  16. ADVAIR DISKUS (FLUTICASONE PROPIONATE, SALMETEROL XINAFOATE) [Concomitant]
  17. FERROUS SULFATE TAB [Concomitant]
  18. CALCIUM (CALCIUM) [Concomitant]
  19. MULTIVITAMIN [Concomitant]
  20. FISH OIL (FISH OIL) [Concomitant]
  21. ASCORBIC ACID [Concomitant]
  22. BYETTA [Suspect]
     Dosage: 5 UG 2/D SUBCUTANEOUS
     Route: 058
     Dates: start: 20070823

REACTIONS (8)
  - ANAEMIA [None]
  - BLOOD COUNT ABNORMAL [None]
  - BLOOD CREATININE INCREASED [None]
  - BLOOD PRESSURE DECREASED [None]
  - DECREASED APPETITE [None]
  - FATIGUE [None]
  - NAUSEA [None]
  - WEIGHT DECREASED [None]
